FAERS Safety Report 16887243 (Version 1)
Quarter: 2019Q4

REPORT INFORMATION
  Report Type: Spontaneous
  Country: CH (occurrence: CH)
  Receive Date: 20191004
  Receipt Date: 20191004
  Transmission Date: 20200122
  Serious: Yes (Hospitalization, Other)
  Sender: FDA-Public Use
  Company Number: CH-ALLERGAN-1939897US

PATIENT
  Sex: Female
  Weight: 59 kg

DRUGS (14)
  1. IRBESARTAN MEPHA [Concomitant]
     Dosage: UNK
     Route: 048
     Dates: end: 20190818
  2. MEMANTINE HCL - BP [Suspect]
     Active Substance: MEMANTINE
     Indication: PRODUCT USED FOR UNKNOWN INDICATION
     Dosage: 5 MG, QD
     Route: 048
     Dates: start: 20190817, end: 20190821
  3. VI-DE 3 [Concomitant]
     Active Substance: CHOLECALCIFEROL
     Dosage: 8 GTT, QD
     Route: 048
  4. ACIDUM FOLICUM STREULI [Concomitant]
     Active Substance: FOLIC ACID
     Dosage: 5 MG, QD
  5. QUETIAPIN SANDOZ [Concomitant]
     Active Substance: QUETIAPINE
     Dosage: 200 MG, QD
     Route: 048
     Dates: start: 20190320, end: 20190814
  6. VESICARE [Concomitant]
     Active Substance: SOLIFENACIN SUCCINATE
     Dosage: 5 MG, QD
     Route: 048
  7. MAGNESIOCARD [Concomitant]
     Active Substance: MAGNESIUM ASPARTATE HYDROCHLORIDE
     Dosage: 10 MMOL, QD
     Route: 048
  8. FRAGMIN [Concomitant]
     Active Substance: DALTEPARIN SODIUM
     Dosage: 5000 IU, QD
     Route: 058
     Dates: start: 20190809, end: 20190826
  9. ASPIRIN CARDIO [Concomitant]
     Active Substance: ASPIRIN
     Dosage: 100 MG, QD
  10. PANTOPRAZOL MEPHA [Concomitant]
     Active Substance: PANTOPRAZOLE SODIUM
     Dosage: 40 MG, QD
     Route: 048
  11. MOTILIUM [Concomitant]
     Active Substance: DOMPERIDONE
     Dosage: 10 MG, Q8HR
     Dates: start: 20190809, end: 20190826
  12. EXELON [Suspect]
     Active Substance: RIVASTIGMINE TARTRATE
     Indication: PRODUCT USED FOR UNKNOWN INDICATION
     Dosage: 5 MG, QD
     Route: 003
     Dates: start: 20190812, end: 20190821
  13. AMLODIPINE MALEATE [Concomitant]
     Active Substance: AMLODIPINE MALEATE
     Dosage: 5 MG, Q12H
     Dates: start: 20190819
  14. ESCITALOPRAM SPIRIG HC [Concomitant]
     Dosage: 10 MG, QD
     Dates: end: 20190809

REACTIONS (2)
  - Urinary tract infection [Recovered/Resolved]
  - Mutism [Recovered/Resolved]

NARRATIVE: CASE EVENT DATE: 20190819
